FAERS Safety Report 7763441-0 (Version None)
Quarter: 2011Q3

REPORT INFORMATION
  Report Type: 
  Country: None (occurrence: None)
  Receive Date: 20110920
  Receipt Date: 20110914
  Transmission Date: 20111222
  Serious: Yes (Other)
  Sender: FDA-Public Use
  Company Number: JP-PFIZER INC-2011216420

PATIENT
  Age: 34 Year
  Sex: Female

DRUGS (3)
  1. SOLU-MEDROL [Suspect]
     Indication: VOGT-KOYANAGI-HARADA SYNDROME
     Dosage: 1000 MG, UNK
     Route: 041
  2. DEPO-MEDROL [Suspect]
     Indication: VOGT-KOYANAGI-HARADA SYNDROME
     Dosage: 20 MG, UNK
  3. TRIMETHOPRIM [Suspect]
     Indication: VOGT-KOYANAGI-HARADA SYNDROME
     Dosage: 20 MG, UNK

REACTIONS (4)
  - MALAISE [None]
  - RESTLESSNESS [None]
  - RETINAL DETACHMENT [None]
  - CATARACT [None]
